FAERS Safety Report 14319156 (Version 2)
Quarter: 2018Q1

REPORT INFORMATION
  Report Type: Spontaneous
  Country: RU (occurrence: RU)
  Receive Date: 20171222
  Receipt Date: 20180124
  Transmission Date: 20180509
  Serious: Yes (Other)
  Sender: FDA-Public Use
  Company Number: RU-TEVA-2017-RU-835713

PATIENT
  Sex: Female

DRUGS (1)
  1. MODELL LIBERA [Suspect]
     Active Substance: ETHINYL ESTRADIOL\LEVONORGESTREL
     Route: 048

REACTIONS (1)
  - Hypoacusis [Unknown]
